FAERS Safety Report 18730071 (Version 5)
Quarter: 2021Q2

REPORT INFORMATION
  Report Type: Report from Study
  Country: CA (occurrence: CA)
  Receive Date: 20210112
  Receipt Date: 20210625
  Transmission Date: 20210717
  Serious: Yes (Hospitalization, Other)
  Sender: FDA-Public Use
  Company Number: CA-NOVOPROD-778439

PATIENT
  Age: 67 Year
  Sex: Male
  Weight: 90 kg

DRUGS (3)
  1. SEMAGLUTIDE 3 MG [Suspect]
     Active Substance: SEMAGLUTIDE
     Dosage: UNK
     Dates: start: 20191004
  2. SEMAGLUTIDE 3 MG [Suspect]
     Active Substance: SEMAGLUTIDE
     Dosage: UNK
     Dates: start: 20190810, end: 20190924
  3. SEMAGLUTIDE 3 MG [Suspect]
     Active Substance: SEMAGLUTIDE
     Indication: TYPE 2 DIABETES MELLITUS
     Dosage: 3.0,MG,ONCE PER DAY
     Route: 048
     Dates: start: 20190810

REACTIONS (3)
  - Bacteraemia [Recovered/Resolved]
  - Cholecystitis acute [Recovered/Resolved]
  - Postoperative abscess [Recovered/Resolved]

NARRATIVE: CASE EVENT DATE: 20201229
